FAERS Safety Report 13037685 (Version 1)
Quarter: 2016Q4

REPORT INFORMATION
  Report Type: Spontaneous
  Country: US (occurrence: US)
  Receive Date: 20161217
  Receipt Date: 20161217
  Transmission Date: 20170207
  Serious: No
  Sender: FDA-Public Use
  Company Number: US-TEVA-715212USA

PATIENT
  Sex: Male

DRUGS (4)
  1. QNASL [Suspect]
     Active Substance: BECLOMETHASONE DIPROPIONATE
     Route: 065
     Dates: start: 2014
  2. SALINE SOLUTION [Concomitant]
     Active Substance: SODIUM CHLORIDE
     Indication: SINUS DISORDER
  3. BENADRYL [Concomitant]
     Active Substance: DIPHENHYDRAMINE HYDROCHLORIDE
     Indication: TRANSIENT ACANTHOLYTIC DERMATOSIS
  4. PROSTATE HEALTH [Concomitant]
     Indication: SUPPLEMENTATION THERAPY

REACTIONS (9)
  - Insomnia [Recovered/Resolved]
  - Chills [Recovered/Resolved]
  - Hyperhidrosis [Recovered/Resolved]
  - Paranasal sinus discomfort [Unknown]
  - Pruritus [Unknown]
  - Sinusitis [Unknown]
  - Panic attack [Recovered/Resolved]
  - Pollakiuria [Recovered/Resolved]
  - Sinus congestion [Unknown]

NARRATIVE: CASE EVENT DATE: 20161114
